FAERS Safety Report 7772220-X (Version None)
Quarter: 2011Q3

REPORT INFORMATION
  Report Type: 
  Country: None (occurrence: None)
  Receive Date: 20110922
  Receipt Date: 20110413
  Transmission Date: 20111222
  Serious: No
  Sender: FDA-Public Use
  Company Number: US-ASTRAZENECA-2009UW13705

PATIENT
  Age: 24 Year
  Sex: Female
  Weight: 65.8 kg

DRUGS (12)
  1. SEROQUEL [Suspect]
     Dosage: 50 TO 200 MG
     Route: 048
     Dates: start: 20080730
  2. SEROQUEL [Suspect]
     Dosage: 50 TO 200 MG
     Route: 048
     Dates: start: 20080730
  3. SEROQUEL [Suspect]
     Indication: INSOMNIA
     Route: 048
     Dates: start: 20060101, end: 20080101
  4. PRAZOSIN HCL [Concomitant]
     Dates: start: 20080101
  5. SEROQUEL [Suspect]
     Indication: DEPRESSION
     Route: 048
     Dates: start: 20060101, end: 20080101
  6. GEODON [Concomitant]
     Dates: start: 20090101
  7. ADDERALL 5 [Concomitant]
     Dates: start: 20080101
  8. BUSPIRONE HCL [Concomitant]
     Route: 048
     Dates: start: 20080815
  9. SEROQUEL [Suspect]
     Indication: BIPOLAR I DISORDER
     Route: 048
     Dates: start: 20060101, end: 20080101
  10. SEROQUEL [Suspect]
     Dosage: 50 TO 200 MG
     Route: 048
     Dates: start: 20080730
  11. BUPROPION HCL [Concomitant]
     Dosage: 150 TO 400 MG
     Route: 048
     Dates: start: 20080730
  12. AZITHROMYCIN [Concomitant]
     Dosage: 250 TO 500 MG
     Dates: start: 20080815

REACTIONS (3)
  - OBESITY [None]
  - TYPE 2 DIABETES MELLITUS [None]
  - WEIGHT INCREASED [None]
